FAERS Safety Report 15346781 (Version 1)
Quarter: 2018Q3

REPORT INFORMATION
  Report Type: Spontaneous
  Country: BR (occurrence: BR)
  Receive Date: 20180904
  Receipt Date: 20180904
  Transmission Date: 20181010
  Serious: Yes (Other)
  Sender: FDA-Public Use
  Company Number: PHHY2018BR082407

PATIENT
  Age: 27 Year
  Sex: Male

DRUGS (1)
  1. NAPHAZOLINE [Suspect]
     Active Substance: NAPHAZOLINE\NAPHAZOLINE HYDROCHLORIDE
     Indication: PRODUCT USED FOR UNKNOWN INDICATION
     Dosage: 300 ML, QD
     Route: 045

REACTIONS (2)
  - Drug abuse [Unknown]
  - Cardiomyopathy [Unknown]
